FAERS Safety Report 14974432 (Version 1)
Quarter: 2018Q2

REPORT INFORMATION
  Report Type: Other
  Country: FR (occurrence: FR)
  Receive Date: 20180605
  Receipt Date: 20180605
  Transmission Date: 20180711
  Serious: Yes (Death, Other)
  Sender: FDA-Public Use
  Company Number: FR-ACTELION-A-CH2018-173115

PATIENT

DRUGS (1)
  1. EPOPROSTENOL SODIUM. [Suspect]
     Active Substance: EPOPROSTENOL SODIUM
     Indication: PORTOPULMONARY HYPERTENSION
     Route: 042

REACTIONS (3)
  - Cholangitis [Fatal]
  - Disease recurrence [Fatal]
  - Hepatocellular carcinoma [Fatal]
